FAERS Safety Report 21795950 (Version 2)
Quarter: 2023Q1

REPORT INFORMATION
  Report Type: Spontaneous
  Country: US (occurrence: US)
  Receive Date: 20221229
  Receipt Date: 20230126
  Transmission Date: 20230417
  Serious: Yes (Hospitalization, Other)
  Sender: FDA-Public Use
  Company Number: US-BAYER-2022P033135

PATIENT
  Age: 52 Year
  Sex: Male

DRUGS (1)
  1. KOGENATE FS [Suspect]
     Active Substance: ANTIHEMOPHILIC FACTOR, HUMAN RECOMBINANT
     Indication: Factor VIII deficiency
     Dosage: 2000 IU, PRN
     Route: 042
     Dates: start: 201601

REACTIONS (2)
  - Gastric haemorrhage [None]
  - Scan abdomen abnormal [None]

NARRATIVE: CASE EVENT DATE: 20221115
